FAERS Safety Report 8508018-4 (Version None)
Quarter: 2012Q2

REPORT INFORMATION
  Report Type: 
  Country: None (occurrence: None)
  Receive Date: 20120405
  Receipt Date: 20090922
  Transmission Date: 20120825
  Serious: Yes (Other)
  Sender: FDA-Public Use
  Company Number: PHEH2009US07339

PATIENT
  Sex: Female

DRUGS (2)
  1. RECLAST [Suspect]
     Dosage: UNK
     Dates: start: 20080301
  2. RECLAST [Suspect]
     Dosage: UNK
     Dates: start: 20090401

REACTIONS (6)
  - PAIN [None]
  - RENAL IMPAIRMENT [None]
  - INFLUENZA LIKE ILLNESS [None]
  - PYREXIA [None]
  - KIDNEY INFECTION [None]
  - FATIGUE [None]
